FAERS Safety Report 25051956 (Version 1)
Quarter: 2025Q1

REPORT INFORMATION
  Report Type: Spontaneous
  Country: CA (occurrence: CA)
  Receive Date: 20250307
  Receipt Date: 20250307
  Transmission Date: 20250408
  Serious: Yes (Life-Threatening, Hospitalization, Other)
  Sender: MERCK SHARP & DOHME LLC
  Company Number: CA-009507513-2261443

PATIENT
  Age: 61 Year
  Sex: Male
  Weight: 76 kg

DRUGS (9)
  1. KEYTRUDA [Suspect]
     Active Substance: PEMBROLIZUMAB
     Indication: Lung neoplasm
     Dosage: 300.0 MILLIGRAM, 1 EVERY 6 WEEKS, STRENGTH: 4ML SINGLE USE VIAL
     Route: 042
  2. FLUTICASONE [Concomitant]
     Active Substance: FLUTICASONE
     Route: 065
  3. INSPIOLTO RESPIMAT?FOR ORAL INHALATION.?WITH INSPIOLTO?RESPIMAT INH... [Concomitant]
     Route: 048
  4. ATORVASTATIN [Concomitant]
     Active Substance: ATORVASTATIN
     Route: 065
  5. CITALOPRAM [Concomitant]
     Active Substance: CITALOPRAM
     Route: 065
  6. LEVOTHYROXINE [Concomitant]
     Active Substance: LEVOTHYROXINE
     Route: 065
  7. METOCLOPRAMIDE [Concomitant]
     Active Substance: METOCLOPRAMIDE
     Route: 065
  8. MOMETASONE FUROATE [Concomitant]
     Active Substance: MOMETASONE FUROATE
     Route: 065
  9. ALBUTEROL [Concomitant]
     Active Substance: ALBUTEROL
     Route: 065

REACTIONS (2)
  - Pneumoperitoneum [Unknown]
  - Small intestinal perforation [Unknown]
